FAERS Safety Report 6557006-6 (Version None)
Quarter: 2010Q1

REPORT INFORMATION
  Report Type: 
  Country: None (occurrence: None)
  Receive Date: 20100126
  Receipt Date: 20100119
  Transmission Date: 20100710
  Serious: Yes (Death)
  Sender: FDA-Public Use
  Company Number: 2010010042

PATIENT
  Age: 41 Year
  Sex: Female

DRUGS (8)
  1. ONSOLIS [Suspect]
     Indication: CANCER PAIN
     Dosage: BU
     Route: 002
     Dates: start: 20091211
  2. GABAPENTIN [Concomitant]
  3. ZOLOFT [Concomitant]
  4. COMPAZINE [Concomitant]
  5. ZOFRAN [Concomitant]
  6. METHADONE HCL [Concomitant]
  7. OXYCONTIN [Concomitant]
  8. HYDROMORPHONE HCL [Concomitant]

REACTIONS (2)
  - COLON CANCER METASTATIC [None]
  - MALIGNANT NEOPLASM PROGRESSION [None]
